FAERS Safety Report 16884208 (Version 1)
Quarter: 2019Q4

REPORT INFORMATION
  Report Type: Report from Study
  Country: IT (occurrence: IT)
  Receive Date: 20191004
  Receipt Date: 20191004
  Transmission Date: 20200122
  Serious: Yes (Death, Other)
  Sender: FDA-Public Use
  Company Number: IT-ACCORD-156388

PATIENT
  Age: 16 Year
  Sex: Male

DRUGS (2)
  1. MYCOPHENOLIC ACID. [Suspect]
     Active Substance: MYCOPHENOLIC ACID
     Indication: BONE MARROW CONDITIONING REGIMEN
  2. PREDNISONE. [Suspect]
     Active Substance: PREDNISONE
     Indication: BONE MARROW CONDITIONING REGIMEN

REACTIONS (2)
  - Aspergillus infection [Fatal]
  - Cytomegalovirus infection [Recovering/Resolving]
